FAERS Safety Report 5087877-4 (Version None)
Quarter: 2006Q3

REPORT INFORMATION
  Report Type: 
  Country: None (occurrence: None)
  Receive Date: 20060821
  Receipt Date: 20060821
  Transmission Date: 20061208
  Serious: Yes (Life-Threatening, Hospitalization, Disabling)
  Sender: FDA-Public Use
  Company Number: None

PATIENT
  Sex: Male
  Weight: 65.7716 kg

DRUGS (7)
  1. AVASTIN [Suspect]
     Indication: COLON CANCER METASTATIC
     Dosage: 400 MG    ONCE    IV DRIP
     Route: 041
     Dates: start: 20060809, end: 20060811
  2. FOLFOX [Suspect]
     Dosage: OX 160 MG, LV 375, 5FU 750 THE     ONCE   IV DRIP
     Route: 041
  3. LIPITOR [Concomitant]
  4. ASPIRIN [Concomitant]
  5. ZESTRIL [Concomitant]
  6. TOPROL-XL [Concomitant]
  7. IMDUR [Concomitant]

REACTIONS (3)
  - ATRIOVENTRICULAR BLOCK THIRD DEGREE [None]
  - CARDIAC ARREST [None]
  - SYNCOPE [None]
